FAERS Safety Report 21772508 (Version 1)
Quarter: 2022Q4

REPORT INFORMATION
  Report Type: Spontaneous
  Country: DE (occurrence: DE)
  Receive Date: 20221223
  Receipt Date: 20221223
  Transmission Date: 20230112
  Serious: Yes (Other)
  Sender: FDA-Public Use
  Company Number: DE-TEVA-2022-DE-2839970

PATIENT
  Sex: Female

DRUGS (3)
  1. PROGESTERONE [Suspect]
     Active Substance: PROGESTERONE
     Indication: Hormone replacement therapy
     Dosage: DOSE: 1 EVERY 1 DAY
     Route: 065
  2. ESTRADIOL [Suspect]
     Active Substance: ESTRADIOL
     Indication: Hormone replacement therapy
     Dosage: 1.5 STROKES, 1 EVERY 1 DAY
     Route: 065
  3. ESTRIOL [Suspect]
     Active Substance: ESTRIOL
     Indication: Hormone replacement therapy
     Dosage: DOSE: 1 EVERY 1 WEEK
     Route: 065

REACTIONS (3)
  - Postmenopausal haemorrhage [Unknown]
  - Product use issue [Unknown]
  - Wrong technique in product usage process [Unknown]

NARRATIVE: CASE EVENT DATE: 20221127
